FAERS Safety Report 7238272-0 (Version None)
Quarter: 2011Q1

REPORT INFORMATION
  Report Type: 
  Country: None (occurrence: None)
  Receive Date: 20110121
  Receipt Date: 20110118
  Transmission Date: 20110831
  Serious: Yes (Other)
  Sender: FDA-Public Use
  Company Number: US-PFIZER INC-2011012688

PATIENT
  Sex: Male
  Weight: 40.363 kg

DRUGS (5)
  1. ABILIFY [Suspect]
     Indication: ATTENTION DEFICIT/HYPERACTIVITY DISORDER
     Dosage: UNK
     Dates: end: 20110101
  2. STRATTERA [Suspect]
     Indication: ATTENTION DEFICIT/HYPERACTIVITY DISORDER
     Dosage: UNK
  3. GEODON [Suspect]
     Indication: ASPERGER'S DISORDER
     Dosage: 20 MG, 2X/DAY
     Dates: start: 20110117
  4. METHAMPHETAMINE HYDROCHLORIDE [Suspect]
     Indication: ATTENTION DEFICIT/HYPERACTIVITY DISORDER
     Dosage: UNK
  5. CLONIDINE [Suspect]
     Indication: ATTENTION DEFICIT/HYPERACTIVITY DISORDER
     Dosage: UNK

REACTIONS (4)
  - WEIGHT INCREASED [None]
  - SOMNOLENCE [None]
  - PSYCHOMOTOR HYPERACTIVITY [None]
  - DYSKINESIA [None]
